FAERS Safety Report 16873241 (Version 2)
Quarter: 2019Q4

REPORT INFORMATION
  Report Type: Spontaneous
  Country: US (occurrence: US)
  Receive Date: 20191001
  Receipt Date: 20191205
  Transmission Date: 20200122
  Serious: No
  Sender: FDA-Public Use
  Company Number: US-PFIZER INC-2019408270

PATIENT
  Age: 85 Year

DRUGS (1)
  1. NORPACE CR [Suspect]
     Active Substance: DISOPYRAMIDE PHOSPHATE
     Dosage: 150 MG, 2X/DAY,90 DAYS,180 CAPSULES
     Route: 048

REACTIONS (3)
  - Arthritis [Unknown]
  - Off label use [Unknown]
  - Product use issue [Unknown]
